FAERS Safety Report 8837705 (Version 2)
Quarter: 2012Q4

REPORT INFORMATION
  Report Type: Report from Study
  Country: CA (occurrence: CA)
  Receive Date: 20121012
  Receipt Date: 20121015
  Transmission Date: 20130627
  Serious: Yes (Other)
  Sender: FDA-Public Use
  Company Number: CA-ROCHE-1105787

PATIENT
  Age: 84 Year
  Sex: Female

DRUGS (9)
  1. VEMURAFENIB [Suspect]
     Indication: METASTATIC MALIGNANT MELANOMA
     Route: 048
     Dates: start: 20120808
  2. ATENOLOL [Concomitant]
  3. CLONAZEPAM [Concomitant]
  4. HYDROCHLOROTHIAZIDE [Concomitant]
  5. VITAMIN B COMPLEX [Concomitant]
  6. VITAMIN D3 [Concomitant]
  7. GLUCOSAMINE CHONDROITIN COMPLEX [Concomitant]
  8. RAMIPRIL [Concomitant]
  9. VITAMIN E [Concomitant]

REACTIONS (8)
  - Pain [Not Recovered/Not Resolved]
  - Abdominal discomfort [Not Recovered/Not Resolved]
  - Squamous cell carcinoma [Not Recovered/Not Resolved]
  - Liver function test abnormal [Unknown]
  - Fatigue [Not Recovered/Not Resolved]
  - Ill-defined disorder [Not Recovered/Not Resolved]
  - Insomnia [Not Recovered/Not Resolved]
  - Basal cell carcinoma [Unknown]
